FAERS Safety Report 7876644-1 (Version None)
Quarter: 2011Q4

REPORT INFORMATION
  Report Type: 
  Country: None (occurrence: None)
  Receive Date: 20111031
  Receipt Date: 20100628
  Transmission Date: 20120403
  Serious: No
  Sender: FDA-Public Use
  Company Number: US-BAYER-201026719NA

PATIENT
  Age: 49 Year
  Sex: Female

DRUGS (2)
  1. PREMARIN [Concomitant]
     Dosage: UNK
  2. AVELOX [Suspect]
     Indication: ANTIBIOTIC THERAPY
     Dosage: UNK, QD
     Route: 048
     Dates: start: 20100626, end: 20100628

REACTIONS (1)
  - PAIN IN EXTREMITY [None]
